FAERS Safety Report 20071371 (Version 1)
Quarter: 2021Q4

REPORT INFORMATION
  Report Type: Report from Study
  Country: US (occurrence: US)
  Receive Date: 20211115
  Receipt Date: 20211115
  Transmission Date: 20220303
  Serious: Yes (Hospitalization)
  Sender: FDA-Public Use
  Company Number: US-ABBVIE-21K-163-4155815-00

PATIENT
  Sex: Female

DRUGS (1)
  1. IMBRUVICA [Suspect]
     Active Substance: IBRUTINIB
     Indication: Product used for unknown indication
     Route: 048
     Dates: end: 2021

REACTIONS (7)
  - Mobility decreased [Unknown]
  - Intestinal obstruction [Unknown]
  - Spinal column injury [Unknown]
  - Asthenia [Unknown]
  - Pneumonia [Unknown]
  - Sepsis [Unknown]
  - Wound infection [Unknown]
